FAERS Safety Report 15806612 (Version 3)
Quarter: 2022Q1

REPORT INFORMATION
  Report Type: Report from Study
  Country: CO (occurrence: CO)
  Receive Date: 20190110
  Receipt Date: 20220105
  Transmission Date: 20220424
  Serious: Yes (Life-Threatening, Other)
  Sender: FDA-Public Use
  Company Number: PHHY2016CO162963

PATIENT
  Sex: Male
  Weight: 80 kg

DRUGS (8)
  1. ELTROMBOPAG OLAMINE [Suspect]
     Active Substance: ELTROMBOPAG OLAMINE
     Indication: Immune thrombocytopenia
     Dosage: 25 MG, BID
     Route: 048
     Dates: start: 20160823
  2. ELTROMBOPAG OLAMINE [Suspect]
     Active Substance: ELTROMBOPAG OLAMINE
     Dosage: 25 MG, TID
     Route: 048
  3. ELTROMBOPAG OLAMINE [Suspect]
     Active Substance: ELTROMBOPAG OLAMINE
     Dosage: 25 MG, BID
     Route: 048
  4. ELTROMBOPAG OLAMINE [Suspect]
     Active Substance: ELTROMBOPAG OLAMINE
     Dosage: 25 MG, TID
     Route: 048
  5. ELTROMBOPAG OLAMINE [Suspect]
     Active Substance: ELTROMBOPAG OLAMINE
     Dosage: 75 MG, QD
     Route: 048
  6. ELTROMBOPAG OLAMINE [Suspect]
     Active Substance: ELTROMBOPAG OLAMINE
     Dosage: UNK, QD
     Route: 048
  7. PREDNISONE [Suspect]
     Active Substance: PREDNISONE
     Indication: Product used for unknown indication
     Dosage: UNK
     Route: 065
  8. IBUPROFEN [Concomitant]
     Active Substance: IBUPROFEN
     Indication: Product used for unknown indication
     Dosage: UNK
     Route: 065

REACTIONS (22)
  - Platelet count decreased [Unknown]
  - Erectile dysfunction [Unknown]
  - Immune thrombocytopenia [Unknown]
  - Herpes zoster [Unknown]
  - Disease recurrence [Unknown]
  - Emotional disorder [Unknown]
  - Joint swelling [Unknown]
  - Blister [Unknown]
  - Anxiety [Unknown]
  - Anger [Unknown]
  - Feeling abnormal [Unknown]
  - Feeling of despair [Unknown]
  - Illness [Unknown]
  - Haematoma [Unknown]
  - Swelling face [Unknown]
  - Malaise [Unknown]
  - Dizziness [Unknown]
  - Skin discolouration [Unknown]
  - Asthenia [Unknown]
  - Platelet count decreased [Recovered/Resolved]
  - Nasopharyngitis [Unknown]
  - Drug ineffective [Unknown]
